FAERS Safety Report 8347993-8 (Version None)
Quarter: 2012Q2

REPORT INFORMATION
  Report Type: 
  Country: None (occurrence: None)
  Receive Date: 20120509
  Receipt Date: 20120501
  Transmission Date: 20120825
  Serious: Yes (Other)
  Sender: FDA-Public Use
  Company Number: US-JNJFOC-20120503940

PATIENT
  Age: 72 Year
  Sex: Male

DRUGS (4)
  1. ATENOLOL [Concomitant]
     Indication: HYPERTENSION
     Route: 065
     Dates: start: 20100101
  2. NAPROXEN [Concomitant]
     Indication: ARTHRITIS
     Route: 065
  3. ROLAIDS ORIGINAL PEPPERMINT [Suspect]
     Indication: GASTRIC DISORDER
     Dosage: UP TO 3 TIMES A DAY IF NECESSARY
     Route: 048
     Dates: end: 20111101
  4. ROLAIDS ORIGINAL PEPPERMINT [Suspect]
     Indication: STRESS
     Dosage: UP TO 3 TIMES A DAY IF NECESSARY
     Route: 048
     Dates: end: 20111101

REACTIONS (3)
  - COLITIS ULCERATIVE [None]
  - EXPIRED DRUG ADMINISTERED [None]
  - PRODUCT QUALITY ISSUE [None]
